FAERS Safety Report 18818888 (Version 2)
Quarter: 2021Q1

REPORT INFORMATION
  Report Type: Spontaneous
  Country: US (occurrence: US)
  Receive Date: 20210201
  Receipt Date: 20210324
  Transmission Date: 20210419
  Serious: Yes (Other)
  Sender: FDA-Public Use
  Company Number: US-GLAXOSMITHKLINE-US2021GSK024689

PATIENT
  Sex: Female

DRUGS (12)
  1. ZANTAC [Suspect]
     Active Substance: RANITIDINE HYDROCHLORIDE
     Indication: GASTRIC DISORDER
     Dosage: 150 MG, 2X A DAY
     Route: 065
     Dates: start: 201301, end: 201701
  2. RANITIDINE. [Suspect]
     Active Substance: RANITIDINE
     Indication: INFLAMMATORY PAIN
  3. RANITIDINE. [Suspect]
     Active Substance: RANITIDINE
     Indication: GASTRIC DISORDER
     Dosage: 150 MG, 2X A DAY
     Route: 065
     Dates: start: 201301, end: 201701
  4. RANITIDINE CAPSULE [Suspect]
     Active Substance: RANITIDINE
     Indication: INFLAMMATORY PAIN
  5. RANITIDINE. [Suspect]
     Active Substance: RANITIDINE
     Indication: INFLAMMATORY PAIN
  6. ZANTAC [Suspect]
     Active Substance: RANITIDINE HYDROCHLORIDE
     Indication: INFLAMMATORY PAIN
  7. ZANTAC [Suspect]
     Active Substance: RANITIDINE HYDROCHLORIDE
     Indication: GASTRIC DISORDER
     Dosage: 150 MG, 2X A DAY
     Route: 065
     Dates: start: 201301, end: 201701
  8. RANITIDINE CAPSULE [Suspect]
     Active Substance: RANITIDINE
     Indication: GASTRIC DISORDER
     Dosage: 150 MG, 2X A DAY
     Route: 065
     Dates: start: 201301, end: 201701
  9. RANITIDINE. [Suspect]
     Active Substance: RANITIDINE
     Indication: GASTRIC DISORDER
     Dosage: 150 MG, 2X A DAY
     Route: 065
     Dates: start: 201301, end: 201701
  10. ZANTAC [Suspect]
     Active Substance: RANITIDINE HYDROCHLORIDE
     Indication: GASTRIC DISORDER
     Dosage: 150 MG, 2X A DAY
     Route: 065
     Dates: start: 201301, end: 201701
  11. ZANTAC [Suspect]
     Active Substance: RANITIDINE HYDROCHLORIDE
     Indication: INFLAMMATORY PAIN
  12. ZANTAC [Suspect]
     Active Substance: RANITIDINE HYDROCHLORIDE
     Indication: INFLAMMATORY PAIN

REACTIONS (1)
  - Bladder cancer [Unknown]
